FAERS Safety Report 6727908-6 (Version None)
Quarter: 2010Q2

REPORT INFORMATION
  Report Type: 
  Country: None (occurrence: None)
  Receive Date: 20100512
  Receipt Date: 20100115
  Transmission Date: 20101027
  Serious: No
  Sender: FDA-Public Use
  Company Number: 1000011307

PATIENT
  Age: 43 Year
  Sex: Female

DRUGS (2)
  1. SAVELLA [Suspect]
     Indication: FIBROMYALGIA
     Dosage: 50 MG (50MG,1 IN 1 ONCE),ORAL
     Route: 048
     Dates: start: 20100114, end: 20100114
  2. COUMADIN [Concomitant]

REACTIONS (2)
  - NAUSEA [None]
  - VOMITING [None]
